FAERS Safety Report 10727511 (Version 2)
Quarter: 2015Q1

REPORT INFORMATION
  Report Type: Spontaneous
  Country: TR (occurrence: TR)
  Receive Date: 20150121
  Receipt Date: 20150205
  Transmission Date: 20150721
  Serious: Yes (Other)
  Sender: FDA-Public Use
  Company Number: TR-JNJFOC-20150108547

PATIENT

DRUGS (3)
  1. METHOTREXATE [Concomitant]
     Active Substance: METHOTREXATE
     Indication: ANKYLOSING SPONDYLITIS
     Route: 065
  2. INFLIXIMAB, RECOMBINANT [Suspect]
     Active Substance: INFLIXIMAB
     Indication: ANKYLOSING SPONDYLITIS
     Dosage: 0,2 AND EVERY 6 WEEKS
     Route: 042
  3. SULPHASALAZINE [Concomitant]
     Active Substance: SULFASALAZINE
     Indication: ANKYLOSING SPONDYLITIS
     Route: 065

REACTIONS (14)
  - Blood bilirubin increased [Unknown]
  - Drug ineffective [Unknown]
  - Upper respiratory tract infection [Unknown]
  - Treatment noncompliance [Unknown]
  - Nephrolithiasis [Unknown]
  - Uveitis [Unknown]
  - Urinary tract infection [Unknown]
  - Lung infection [Unknown]
  - Rash pruritic [Unknown]
  - Alopecia [Unknown]
  - Blood creatinine increased [Unknown]
  - Skin infection [Unknown]
  - Hepatic enzyme increased [Unknown]
  - Influenza [Unknown]
